FAERS Safety Report 5875994-8 (Version None)
Quarter: 2008Q3

REPORT INFORMATION
  Report Type: 
  Country: None (occurrence: None)
  Receive Date: 20080829
  Receipt Date: 20080829
  Transmission Date: 20090109
  Serious: Yes (Other)
  Sender: FDA-Public Use
  Company Number: None

PATIENT
  Age: 31 Year
  Sex: Female
  Weight: 71.6683 kg

DRUGS (1)
  1. MIRENA [Suspect]

REACTIONS (13)
  - BACK PAIN [None]
  - BREAST TENDERNESS [None]
  - CHEST PAIN [None]
  - DIZZINESS [None]
  - DYSPNOEA [None]
  - HEADACHE [None]
  - MENTAL DISORDER [None]
  - MUSCLE SPASMS [None]
  - MUSCULOSKELETAL CHEST PAIN [None]
  - PANIC ATTACK [None]
  - PARAESTHESIA [None]
  - VISION BLURRED [None]
  - VISUAL IMPAIRMENT [None]
